FAERS Safety Report 23775640 (Version 3)
Quarter: 2024Q2

REPORT INFORMATION
  Report Type: Report from Study
  Country: CO (occurrence: CO)
  Receive Date: 20240423
  Receipt Date: 20240516
  Transmission Date: 20240715
  Serious: Yes (Hospitalization)
  Sender: FDA-Public Use
  Company Number: CO-002147023-NVSC2024CO083990

PATIENT
  Sex: Female
  Weight: 46 kg

DRUGS (8)
  1. KISQALI [Suspect]
     Active Substance: RIBOCICLIB
     Indication: Hormone receptor positive HER2 negative breast cancer
     Dosage: 3 DOSAGE FORM (3 OF 200 MG) (AFTER LUNCH)
     Route: 048
     Dates: start: 202311
  2. KISQALI [Suspect]
     Active Substance: RIBOCICLIB
     Dosage: 600 MG, QD
     Route: 065
  3. KISQALI [Suspect]
     Active Substance: RIBOCICLIB
     Dosage: 600 MG, QD
     Route: 048
     Dates: start: 20231102
  4. LETROZOLE [Suspect]
     Active Substance: LETROZOLE
     Indication: Hormone receptor positive HER2 negative breast cancer
     Dosage: 1 DOSAGE FORM (1 OF 25 MG)
     Route: 048
     Dates: start: 202311
  5. LETROZOLE [Suspect]
     Active Substance: LETROZOLE
     Dosage: 2.5 MG, QD
     Route: 048
     Dates: start: 20231102
  6. ACETAMINOPHEN [Concomitant]
     Active Substance: ACETAMINOPHEN
     Indication: Product used for unknown indication
     Dosage: UNK, Q8H
     Route: 065
  7. MORPHINE [Concomitant]
     Active Substance: MORPHINE
     Indication: Product used for unknown indication
     Dosage: UNK, Q4H
     Route: 065
  8. PREGABALIN [Concomitant]
     Active Substance: PREGABALIN
     Indication: Product used for unknown indication
     Dosage: 75 MG (AT NIGHT)
     Route: 065

REACTIONS (11)
  - Metastases to spine [Unknown]
  - Mobility decreased [Unknown]
  - Pain [Recovered/Resolved]
  - Platelet count decreased [Unknown]
  - Chest pain [Recovered/Resolved]
  - Movement disorder [Recovered/Resolved]
  - Cough [Not Recovered/Not Resolved]
  - Arthralgia [Recovered/Resolved]
  - Pneumonia [Recovered/Resolved]
  - Pelvic pain [Not Recovered/Not Resolved]
  - Movement disorder [Not Recovered/Not Resolved]
